FAERS Safety Report 7796676-1 (Version None)
Quarter: 2011Q4

REPORT INFORMATION
  Report Type: 
  Country: None (occurrence: None)
  Receive Date: 20111005
  Receipt Date: 20090911
  Transmission Date: 20120403
  Serious: Yes (Other)
  Sender: FDA-Public Use
  Company Number: DE-RANBAXY-2009US-46044

PATIENT

DRUGS (3)
  1. CLARITHROMYCIN [Suspect]
     Indication: HELICOBACTER GASTRITIS
     Dosage: 500 MG, BID
     Route: 048
     Dates: start: 20090812, end: 20090819
  2. AMOXICILLIN [Suspect]
     Indication: HELICOBACTER GASTRITIS
     Dosage: 1000 MG, BID
     Route: 065
     Dates: start: 20090812, end: 20090819
  3. PANTOPRAZOLE [Suspect]
     Indication: HELICOBACTER GASTRITIS
     Dosage: 20 MG, UNK
     Route: 048
     Dates: start: 20090812, end: 20090819

REACTIONS (5)
  - OROPHARYNGEAL PAIN [None]
  - SWOLLEN TONGUE [None]
  - LIP SWELLING [None]
  - GLOSSODYNIA [None]
  - PARAESTHESIA [None]
